FAERS Safety Report 10310454 (Version 1)
Quarter: 2014Q3

REPORT INFORMATION
  Report Type: Spontaneous
  Country: ES (occurrence: ES)
  Receive Date: 20140717
  Receipt Date: 20140717
  Transmission Date: 20150326
  Serious: Yes (Other)
  Sender: FDA-Public Use
  Company Number: ES-JNJFOC-20140706878

PATIENT

DRUGS (4)
  1. ABACAVIR + LAMIVUDINE [Concomitant]
     Active Substance: ABACAVIR\LAMIVUDINE
     Indication: HIV INFECTION
     Route: 065
  2. RITONAVIR [Suspect]
     Active Substance: RITONAVIR
     Indication: HIV INFECTION
     Route: 065
  3. DARUNAVIR [Suspect]
     Active Substance: DARUNAVIR
     Indication: HIV INFECTION
     Route: 048
  4. TENOFOVIR/EMTRICITABINE [Concomitant]
     Active Substance: EMTRICITABINE\TENOFOVIR
     Indication: HIV INFECTION
     Route: 065

REACTIONS (35)
  - Constipation [Unknown]
  - Staphylococcal infection [Unknown]
  - Acute hepatitis C [Unknown]
  - Herpes zoster disseminated [Unknown]
  - Pyrexia [Unknown]
  - Drug ineffective [Unknown]
  - Diarrhoea haemorrhagic [Unknown]
  - Subcutaneous abscess [Unknown]
  - Pulmonary tuberculosis [Unknown]
  - Virologic failure [Unknown]
  - Headache [Unknown]
  - Nasopharyngitis [Unknown]
  - Insomnia [Unknown]
  - Rash [Unknown]
  - Pharyngitis [Unknown]
  - Acute sinusitis [Unknown]
  - Blood creatinine increased [Unknown]
  - Diarrhoea [Unknown]
  - Back pain [Unknown]
  - Arthralgia [Unknown]
  - Myocardial infarction [Unknown]
  - Drug hypersensitivity [Unknown]
  - Nausea [Unknown]
  - Upper respiratory tract infection [Unknown]
  - Dizziness [Unknown]
  - Depression [Unknown]
  - Vomiting [Unknown]
  - Calculus urinary [Unknown]
  - Alanine aminotransferase increased [Unknown]
  - Cough [Unknown]
  - Fatigue [Unknown]
  - Bronchitis [Unknown]
  - Pneumonia [Unknown]
  - Pneumonia bacterial [Unknown]
  - Sinusitis [Unknown]
